FAERS Safety Report 7579007-1 (Version None)
Quarter: 2011Q2

REPORT INFORMATION
  Report Type: 
  Country: None (occurrence: None)
  Receive Date: 20110628
  Receipt Date: 20110617
  Transmission Date: 20111010
  Serious: Yes (Hospitalization)
  Sender: FDA-Public Use
  Company Number: PHHY2011NL53573

PATIENT
  Age: 64 Year
  Sex: Female

DRUGS (9)
  1. CITALOPRAM HYDROBROMIDE [Interacting]
     Dosage: 20 MG, DAILY
  2. CYCLOPHOSPHAMIDE [Interacting]
     Dosage: 500 MG/M2, UNK
  3. EPIRUBICIN [Suspect]
     Indication: BREAST CANCER
     Dosage: 100 MG/M2, UNK
  4. CITALOPRAM HYDROBROMIDE [Interacting]
     Dosage: 30 MG, DAILY
  5. CITALOPRAM HYDROBROMIDE [Interacting]
     Dosage: 40 MG, DAILY
  6. ISOTONIC SALINE [Concomitant]
     Dosage: 0.5 L, UNK
  7. DEXAMETHASONE [Concomitant]
     Indication: PROPHYLAXIS OF NAUSEA AND VOMITING
  8. FLUOROURACIL [Suspect]
     Indication: BREAST CANCER
     Dosage: 500 MG/M2, UNK
  9. ONDANSETRON [Concomitant]
     Indication: PROPHYLAXIS OF NAUSEA AND VOMITING

REACTIONS (6)
  - ALTERED STATE OF CONSCIOUSNESS [None]
  - DRUG INTERACTION [None]
  - HYPONATRAEMIA [None]
  - CONVULSION [None]
  - SPEECH DISORDER [None]
  - DIZZINESS [None]
